FAERS Safety Report 4445762-2 (Version None)
Quarter: 2004Q3

REPORT INFORMATION
  Report Type: 
  Country: None (occurrence: None)
  Receive Date: 20040902
  Receipt Date: 20040823
  Transmission Date: 20050211
  Serious: Yes (Death)
  Sender: FDA-Public Use
  Company Number: 208588

PATIENT
  Age: 90 Year
  Sex: Male

DRUGS (1)
  1. METALYSE(TENECTEPLASE) PWDR + SOLVENT, INJECTION SOLN, 50MG [Suspect]
     Dosage: 40 MG, SINGLE, IV BOLUS
     Route: 040

REACTIONS (1)
  - DEATH [None]
